FAERS Safety Report 4704874-6 (Version None)
Quarter: 2005Q2

REPORT INFORMATION
  Report Type: 
  Country: None (occurrence: None)
  Receive Date: 20050630
  Receipt Date: 20050630
  Transmission Date: 20051028
  Serious: Yes (Life-Threatening)
  Sender: FDA-Public Use
  Company Number: None

PATIENT
  Age: 35 Year
  Sex: Male

DRUGS (1)
  1. OPTIRAY 350 [Suspect]
     Indication: SCAN WITH CONTRAST
     Dates: start: 20050624, end: 20050624

REACTIONS (8)
  - ARTERIOSPASM CORONARY [None]
  - BLOOD PRESSURE SYSTOLIC INCREASED [None]
  - CHEST DISCOMFORT [None]
  - CONTRAST MEDIA REACTION [None]
  - ELECTROCARDIOGRAM CHANGE [None]
  - ELECTROCARDIOGRAM ST SEGMENT ABNORMAL [None]
  - PALLOR [None]
  - SKIN DISCOLOURATION [None]
